FAERS Safety Report 23605088 (Version 2)
Quarter: 2024Q1

REPORT INFORMATION
  Report Type: Spontaneous
  Country: JP (occurrence: JP)
  Receive Date: 20240307
  Receipt Date: 20240318
  Transmission Date: 20240410
  Serious: Yes (Other)
  Sender: FDA-Public Use
  Company Number: JP-JNJFOC-20240278393

PATIENT
  Age: 83 Year
  Sex: Male

DRUGS (3)
  1. ITRACONAZOLE [Suspect]
     Active Substance: ITRACONAZOLE
     Indication: Keratitis fungal
     Dosage: DOSE ADJUSTMENT RECOMMENDED BASED ON RENAL FUNCTION
     Route: 065
  2. MICONAZOLE [Suspect]
     Active Substance: MICONAZOLE
     Indication: Keratitis fungal
     Route: 047
  3. NATAMYCIN [Suspect]
     Active Substance: NATAMYCIN
     Indication: Keratitis fungal
     Route: 047

REACTIONS (3)
  - Hypopyon [Unknown]
  - Diarrhoea [Unknown]
  - Drug ineffective [Unknown]
